FAERS Safety Report 7966250-2 (Version None)
Quarter: 2011Q4

REPORT INFORMATION
  Report Type: 
  Country: None (occurrence: None)
  Receive Date: 20111208
  Receipt Date: 20111201
  Transmission Date: 20120403
  Serious: Yes (Hospitalization)
  Sender: FDA-Public Use
  Company Number: PHHO2011GB020222

PATIENT
  Sex: Male

DRUGS (7)
  1. DOCETAXEL [Suspect]
     Indication: PROSTATE CANCER
     Dosage: 150 MG, UNK
     Route: 042
     Dates: start: 20111115
  2. LISINOPRIL [Concomitant]
     Dosage: 10.8 MG, UNK
     Route: 048
     Dates: start: 20111018
  3. ZOLADEX [Suspect]
     Indication: PROSTATE CANCER
     Dosage: 3.6 MG, UNK
     Route: 058
     Dates: start: 20110924
  4. ATORVASTATIN [Concomitant]
     Dosage: 10 MG, UNK
     Route: 048
     Dates: start: 20070817
  5. ASPIRIN [Concomitant]
     Dosage: 75 MG, UNK
     Route: 048
     Dates: start: 20070817
  6. BENDROFLUAZIDE [Concomitant]
     Dosage: 2.5 MG, UNK
     Route: 048
     Dates: start: 20070817
  7. ZOLEDRONIC [Suspect]
     Indication: PROSTATE CANCER
     Dosage: 4 MG, UNK
     Route: 042
     Dates: start: 20111115

REACTIONS (1)
  - NEUTROPENIC SEPSIS [None]
